FAERS Safety Report 8581576-X (Version None)
Quarter: 2012Q3

REPORT INFORMATION
  Report Type: 
  Country: None (occurrence: None)
  Receive Date: 20120809
  Receipt Date: 20120801
  Transmission Date: 20120928
  Serious: Yes (Other)
  Sender: FDA-Public Use
  Company Number: US-BAYER-2012-079183

PATIENT
  Age: 49 Year
  Sex: Female
  Weight: 90.249 kg

DRUGS (19)
  1. NASONEX [Concomitant]
  2. LIPITOR [Concomitant]
     Dosage: 40 MG, UNK
     Route: 048
  3. MELOXICAM [Concomitant]
     Dosage: 7.5 MG, UNK
  4. DROSPIRENONE AND ETHINYL ESTRADIOL [Suspect]
  5. SYNTHROID [Concomitant]
     Dosage: 150 ?G, UNK
  6. LEVOTHYROXINE SODIUM [Concomitant]
     Dosage: 150 ?G, UNK
  7. XANAX [Concomitant]
     Dosage: 0.5 MG, 1 DAILY PRN
  8. AMBIEN [Concomitant]
     Indication: SLEEP DISORDER
     Dosage: 10 MG, ONE NIGHTLY PRN
  9. AUGMENTIN '500' [Concomitant]
     Indication: SINUSITIS
     Dosage: 875 MG, BID
     Dates: start: 20101005
  10. PSEUDOEPHEDRINE HCL W/GUAIFENESIN [Concomitant]
  11. LANTUS [Concomitant]
     Dosage: UNK
     Route: 058
  12. PAXIL [Concomitant]
     Dosage: 40 MG, UNK
  13. PSEUDOEPHEDRINE HCL W/GUAIFENESIN [Concomitant]
     Indication: SINUSITIS
     Dosage: UNK
     Dates: start: 20101005
  14. CARBIDOPA + LEVODOPA [Concomitant]
     Indication: RESTLESS LEGS SYNDROME
     Dosage: 25-100 MG
  15. METFORMIN HCL [Concomitant]
     Dosage: 1000 MG, UNK
  16. AUGMENTIN '500' [Concomitant]
  17. NASONEX [Concomitant]
     Indication: SINUSITIS
     Dosage: 1 PUFF EACH NOSTRIL DAILY
     Route: 045
     Dates: start: 20101005
  18. ZOLPIDEM [Concomitant]
     Indication: SLEEP DISORDER
     Dosage: 10 MG, ONE NIGHTLY PRN
  19. PAROXETINE [Concomitant]
     Dosage: 40 MG, UNK

REACTIONS (1)
  - DEEP VEIN THROMBOSIS [None]
